FAERS Safety Report 7715268-3 (Version None)
Quarter: 2011Q3

REPORT INFORMATION
  Report Type: 
  Country: None (occurrence: None)
  Receive Date: 20110829
  Receipt Date: 20110825
  Transmission Date: 20111222
  Serious: Yes (Death)
  Sender: FDA-Public Use
  Company Number: PHHY2011CA73316

PATIENT
  Sex: Male

DRUGS (2)
  1. CLOZAPINE [Suspect]
     Indication: SCHIZOPHRENIA
     Dosage: 12.5 MG, QHS
     Route: 048
     Dates: start: 20090818
  2. CLOZAPINE [Suspect]
     Indication: PSYCHOTIC DISORDER

REACTIONS (1)
  - CARDIO-RESPIRATORY ARREST [None]
